FAERS Safety Report 4800830-8 (Version None)
Quarter: 2005Q4

REPORT INFORMATION
  Report Type: 
  Country: None (occurrence: None)
  Receive Date: 20051011
  Receipt Date: 20050927
  Transmission Date: 20060501
  Serious: Yes (Hospitalization, Disabling, Other)
  Sender: FDA-Public Use
  Company Number: 2005134823

PATIENT
  Age: 68 Year
  Sex: Male

DRUGS (4)
  1. CELEBREX [Suspect]
     Indication: RHEUMATOID ARTHRITIS
     Dosage: 200 MG (200 MG, 1 IN 1 WK), ORAL
     Route: 048
     Dates: start: 20021201, end: 20041001
  2. PLENDIL [Concomitant]
  3. APROVEL (IRBESARTAN) [Concomitant]
  4. ALBYL-E (ACETYLSALICYLIC ACID, MAGNESIUM OXIDE) [Concomitant]

REACTIONS (6)
  - BLOOD PRESSURE DIASTOLIC INCREASED [None]
  - CARDIAC MURMUR [None]
  - CAROTID ARTERY STENOSIS [None]
  - ISCHAEMIA [None]
  - RETINAL ARTERY EMBOLISM [None]
  - VISUAL FIELD DEFECT [None]
